FAERS Safety Report 9140944 (Version 3)
Quarter: 2013Q2

REPORT INFORMATION
  Report Type: Spontaneous
  Country: GB (occurrence: GB)
  Receive Date: 20130305
  Receipt Date: 20130404
  Transmission Date: 20140414
  Serious: Yes (Other)
  Sender: FDA-Public Use
  Company Number: GB-PFIZER INC-2013075827

PATIENT
  Age: 64 Year
  Sex: Male

DRUGS (3)
  1. PREGABALIN [Suspect]
     Indication: SPINAL FRACTURE
     Dosage: 150 MG, 2X/DAY
     Dates: start: 201002
  2. PREGABALIN [Suspect]
     Indication: ABSCESS
  3. MORPHINE SULFATE [Suspect]
     Dosage: 30 MG, 2X/DAY

REACTIONS (6)
  - Diabetes mellitus [Unknown]
  - Neuralgia [Unknown]
  - Anxiety [Unknown]
  - Intentional drug misuse [Unknown]
  - Withdrawal syndrome [Unknown]
  - Pain [Unknown]
